FAERS Safety Report 7706659-5 (Version None)
Quarter: 2011Q3

REPORT INFORMATION
  Report Type: 
  Country: None (occurrence: None)
  Receive Date: 20110824
  Receipt Date: 20110818
  Transmission Date: 20111222
  Serious: Yes (Other)
  Sender: FDA-Public Use
  Company Number: US-PFIZER INC-2007036433

PATIENT
  Sex: Female

DRUGS (3)
  1. NEURONTIN [Suspect]
     Indication: PAIN
  2. NEURONTIN [Suspect]
     Indication: NEUROPATHY PERIPHERAL
  3. NEURONTIN [Suspect]
     Indication: FIBROMYALGIA
     Dosage: 300 MC
     Dates: start: 20020101, end: 20030101

REACTIONS (9)
  - FALL [None]
  - SUICIDAL IDEATION [None]
  - DRUG INEFFECTIVE FOR UNAPPROVED INDICATION [None]
  - THINKING ABNORMAL [None]
  - AMNESIA [None]
  - HOMICIDAL IDEATION [None]
  - AFFECT LABILITY [None]
  - DEPRESSION [None]
  - BALANCE DISORDER [None]
